FAERS Safety Report 12939646 (Version 1)
Quarter: 2016Q4

REPORT INFORMATION
  Report Type: Spontaneous
  Country: US (occurrence: US)
  Receive Date: 20161114
  Receipt Date: 20161114
  Transmission Date: 20170207
  Serious: No
  Sender: FDA-Public Use
  Company Number: US-VERNALIS THERAPEUTICS, INC.-2016VRN00047

PATIENT

DRUGS (1)
  1. TUZISTRA XR [Suspect]
     Active Substance: CHLORPHENIRAMINE MALEATE\CODEINE PHOSPHATE ANHYDROUS
     Dosage: UNK

REACTIONS (1)
  - Rash [Unknown]
